FAERS Safety Report 12994024 (Version 1)
Quarter: 2016Q4

REPORT INFORMATION
  Report Type: Spontaneous
  Country: US (occurrence: US)
  Receive Date: 20161201
  Receipt Date: 20161201
  Transmission Date: 20170207
  Serious: Yes (Other)
  Sender: FDA-Public Use
  Company Number: None

PATIENT
  Age: 32 Year
  Sex: Male
  Weight: 80.55 kg

DRUGS (1)
  1. ENTYVIO [Suspect]
     Active Substance: VEDOLIZUMAB
     Indication: CROHN^S DISEASE
     Route: 042
     Dates: start: 20161116

REACTIONS (4)
  - Nausea [None]
  - Vomiting [None]
  - Diarrhoea [None]
  - Chills [None]

NARRATIVE: CASE EVENT DATE: 20161127
